FAERS Safety Report 7027349-0 (Version None)
Quarter: 2010Q4

REPORT INFORMATION
  Report Type: 
  Country: None (occurrence: None)
  Receive Date: 20101004
  Receipt Date: 20100928
  Transmission Date: 20110411
  Serious: Yes (Death)
  Sender: FDA-Public Use
  Company Number: PHHY2010CZ64741

PATIENT

DRUGS (2)
  1. CYCLOSPORINE [Suspect]
     Indication: STEM CELL TRANSPLANT
  2. METHOTREXATE [Suspect]
     Dosage: UNK

REACTIONS (4)
  - ACUTE GRAFT VERSUS HOST DISEASE [None]
  - COMPLICATIONS OF BONE MARROW TRANSPLANT [None]
  - MULTI-ORGAN FAILURE [None]
  - VENOOCCLUSIVE DISEASE [None]
